FAERS Safety Report 8158395-1 (Version None)
Quarter: 2012Q1

REPORT INFORMATION
  Report Type: 
  Country: None (occurrence: None)
  Receive Date: 20120223
  Receipt Date: 20120210
  Transmission Date: 20120608
  Serious: Yes (Other)
  Sender: FDA-Public Use
  Company Number: US-JNJFOC-20120206184

PATIENT
  Sex: Female
  Weight: 106.6 kg

DRUGS (6)
  1. REMICADE [Suspect]
     Route: 042
  2. VICODIN [Concomitant]
     Indication: PAIN
     Route: 065
     Dates: end: 20120130
  3. REMICADE [Suspect]
     Route: 042
     Dates: start: 20111130
  4. PLAQUENIL [Concomitant]
     Indication: ARTHRITIS
     Route: 065
     Dates: end: 20120130
  5. REMICADE [Suspect]
     Indication: PSORIATIC ARTHROPATHY
     Route: 042
     Dates: end: 20120130
  6. REMICADE [Suspect]
     Dosage: 3RD INFUSION
     Route: 042
     Dates: start: 20111230

REACTIONS (14)
  - POST-TRAUMATIC STRESS DISORDER [None]
  - HYPOTONIA [None]
  - HALLUCINATION, VISUAL [None]
  - PYREXIA [None]
  - FALL [None]
  - MUSCULOSKELETAL STIFFNESS [None]
  - FEELING ABNORMAL [None]
  - HYPOKINESIA [None]
  - ADVERSE DRUG REACTION [None]
  - MUSCLE SPASMS [None]
  - IMMUNOSUPPRESSION [None]
  - PAIN [None]
  - POST-TRAUMATIC NECK SYNDROME [None]
  - DIZZINESS [None]
